FAERS Safety Report 23664317 (Version 3)
Quarter: 2024Q4

REPORT INFORMATION
  Report Type: Spontaneous
  Country: US (occurrence: US)
  Receive Date: 20240322
  Receipt Date: 20241118
  Transmission Date: 20250115
  Serious: No
  Sender: LUPIN
  Company Number: US-LUPIN PHARMACEUTICALS INC.-2024-02403

PATIENT

DRUGS (1)
  1. ALBUTEROL SULFATE [Suspect]
     Active Substance: ALBUTEROL SULFATE
     Indication: Asthma
     Dosage: UNK (PUFFS TWICE A DAY)
     Dates: start: 20230304

REACTIONS (3)
  - Product use issue [Unknown]
  - Device delivery system issue [Unknown]
  - No adverse event [Unknown]
